FAERS Safety Report 9291739 (Version 1)
Quarter: 2013Q2

REPORT INFORMATION
  Report Type: Spontaneous
  Country: US (occurrence: US)
  Receive Date: 20130516
  Receipt Date: 20130516
  Transmission Date: 20140414
  Serious: Yes (Other)
  Sender: FDA-Public Use
  Company Number: US-009507513-1305USA008227

PATIENT
  Sex: Male

DRUGS (2)
  1. PEGINTRON [Suspect]
     Indication: CHRONIC HEPATITIS C
     Dosage: REDIPEN
     Dates: start: 20080101, end: 20090101
  2. REBETOL [Suspect]
     Indication: CHRONIC HEPATITIS C
     Dosage: UNK
     Dates: start: 20080101, end: 20090101

REACTIONS (7)
  - Rectal haemorrhage [Unknown]
  - Alcoholism [Unknown]
  - Oedema [Unknown]
  - Hiatus hernia [Unknown]
  - Dyspepsia [Unknown]
  - Pain [Unknown]
  - Abdominal distension [Unknown]
